FAERS Safety Report 9698927 (Version 1)
Quarter: 2013Q4

REPORT INFORMATION
  Report Type: Report from Study
  Country: US (occurrence: US)
  Receive Date: 20131120
  Receipt Date: 20131120
  Transmission Date: 20140711
  Serious: Yes (Other)
  Sender: FDA-Public Use
  Company Number: US-SA-2013SA120040

PATIENT
  Age: 77 Year
  Sex: Male

DRUGS (4)
  1. PLAVIX [Suspect]
     Indication: ANTIPLATELET THERAPY
     Dosage: LOADING DOSE
     Route: 065
     Dates: start: 20100609, end: 20100609
  2. PLAVIX [Suspect]
     Indication: ANTIPLATELET THERAPY
     Route: 065
     Dates: start: 20100610, end: 20100610
  3. BLINDED THERAPY [Suspect]
     Indication: ANTIPLATELET THERAPY
     Route: 065
  4. ASPIRIN [Suspect]
     Indication: ANTIPLATELET THERAPY
     Route: 065
     Dates: start: 2008

REACTIONS (1)
  - Anaemia [Recovered/Resolved]
